FAERS Safety Report 13690539 (Version 2)
Quarter: 2017Q3

REPORT INFORMATION
  Report Type: Spontaneous
  Country: US (occurrence: US)
  Receive Date: 20170626
  Receipt Date: 20170726
  Transmission Date: 20171127
  Serious: Yes (Hospitalization, Other)
  Sender: FDA-Public Use
  Company Number: US-BAYER-2017-117454

PATIENT
  Age: 48 Year
  Sex: Male

DRUGS (3)
  1. KOGENATE FS [Suspect]
     Active Substance: ANTIHEMOPHILIC FACTOR, HUMAN RECOMBINANT
     Indication: FACTOR VIII DEFICIENCY
     Dosage: 3000 IU DAILY PRN BLEEDS
     Route: 042
     Dates: start: 20160915
  2. KOGENATE FS [Suspect]
     Active Substance: ANTIHEMOPHILIC FACTOR, HUMAN RECOMBINANT
     Indication: FACTOR VIII DEFICIENCY
     Dosage: 5000 IU PRN MAJOR
     Route: 042
     Dates: start: 20160915
  3. KOGENATE FS [Suspect]
     Active Substance: ANTIHEMOPHILIC FACTOR, HUMAN RECOMBINANT
     Indication: FACTOR VIII DEFICIENCY
     Dosage: 3000 IU, QD
     Route: 042
     Dates: start: 20170630

REACTIONS (5)
  - Flushing [None]
  - Headache [None]
  - Dental care [None]
  - Haemorrhage [None]
  - Haemarthrosis [None]

NARRATIVE: CASE EVENT DATE: 20170628
